FAERS Safety Report 7524733-3 (Version None)
Quarter: 2011Q2

REPORT INFORMATION
  Report Type: 
  Country: None (occurrence: None)
  Receive Date: 20110602
  Receipt Date: 20110602
  Transmission Date: 20111010
  Serious: Yes (Other)
  Sender: FDA-Public Use
  Company Number: None

PATIENT
  Age: 17 Year
  Sex: Male
  Weight: 54.7 kg

DRUGS (2)
  1. ZOSYN [Suspect]
     Dosage: 3.375 GM Q6H IV
     Route: 042
     Dates: start: 20110513, end: 20110527
  2. ZOSYN [Suspect]
     Indication: MEDIASTINAL ABSCESS
     Dosage: 3.375 GM Q6H IV
     Route: 042
     Dates: start: 20110513, end: 20110527

REACTIONS (2)
  - WHITE BLOOD CELL COUNT DECREASED [None]
  - NEUTROPHIL COUNT ABNORMAL [None]
